FAERS Safety Report 6583977-8 (Version None)
Quarter: 2010Q1

REPORT INFORMATION
  Report Type: 
  Country: None (occurrence: None)
  Receive Date: 20100213
  Receipt Date: 20100213
  Transmission Date: 20100710
  Serious: Yes (Other)
  Sender: FDA-Public Use
  Company Number: None

PATIENT
  Age: 56 Year
  Sex: Female
  Weight: 90.7194 kg

DRUGS (2)
  1. METOPROLOL SUCCINATE [Suspect]
     Indication: HYPERTENSION
     Dosage: 100 MG 1 PER DAY PO 2 YEAR OR MORE
     Route: 048
     Dates: start: 20080130, end: 20100128
  2. METOPROLOL SUCCINATE [Suspect]
     Indication: HYPERTENSION
     Dosage: 50 MG 1 PER DAY PO AT LEAST A YEAR
     Route: 048
     Dates: start: 20090303, end: 20090707

REACTIONS (20)
  - ABNORMAL DREAMS [None]
  - ALOPECIA [None]
  - ANGINA PECTORIS [None]
  - ARTHRALGIA [None]
  - DEPRESSION [None]
  - DIABETES MELLITUS [None]
  - DIZZINESS [None]
  - DRUG EFFECT DELAYED [None]
  - DRY MOUTH [None]
  - DYSPNOEA EXERTIONAL [None]
  - FATIGUE [None]
  - HYPOAESTHESIA [None]
  - INSOMNIA [None]
  - LOSS OF LIBIDO [None]
  - MEMORY IMPAIRMENT [None]
  - MUSCLE SPASMS [None]
  - PAIN IN EXTREMITY [None]
  - PARAESTHESIA [None]
  - RETCHING [None]
  - TINNITUS [None]
